FAERS Safety Report 6413351-6 (Version None)
Quarter: 2009Q4

REPORT INFORMATION
  Report Type: 
  Country: None (occurrence: None)
  Receive Date: 20091026
  Receipt Date: 20091022
  Transmission Date: 20100525
  Serious: Yes (Death, Other)
  Sender: FDA-Public Use
  Company Number: CA-ROCHE-663853

PATIENT
  Age: 87 Year
  Sex: Male
  Weight: 65 kg

DRUGS (1)
  1. CEFTRIAXONE SODIUM [Suspect]
     Indication: DRUG USE FOR UNKNOWN INDICATION
     Route: 042

REACTIONS (6)
  - BRONCHOSPASM [None]
  - DEATH [None]
  - HYPOTENSION [None]
  - RASH [None]
  - RESPIRATORY FAILURE [None]
  - WHEEZING [None]
